FAERS Safety Report 21578477 (Version 1)
Quarter: 2022Q4

REPORT INFORMATION
  Report Type: Other
  Country: US (occurrence: US)
  Receive Date: 20221110
  Receipt Date: 20221110
  Transmission Date: 20230112
  Serious: No
  Sender: FDA-Public Use
  Company Number: US-LEADIANT BIOSCIENCES INC-2022STPI000253

PATIENT
  Sex: Female

DRUGS (1)
  1. CYSTARAN [Suspect]
     Active Substance: CYSTEAMINE HYDROCHLORIDE
     Indication: Cystinosis
     Dosage: INSTILL 1 DROP INTO EACH EYE EVERY WAKING HOUR
     Route: 047
     Dates: start: 20220719

REACTIONS (4)
  - Eye pain [Unknown]
  - Photophobia [Unknown]
  - Ocular hyperaemia [Unknown]
  - Product dose omission issue [Unknown]
